FAERS Safety Report 18413463 (Version 3)
Quarter: 2020Q4

REPORT INFORMATION
  Report Type: Other
  Country: PT (occurrence: PT)
  Receive Date: 20201021
  Receipt Date: 20201101
  Transmission Date: 20210114
  Serious: Yes (Other)
  Sender: FDA-Public Use
  Company Number: PT-ROCHE-2695710

PATIENT
  Sex: Female

DRUGS (27)
  1. PERJETA [Suspect]
     Active Substance: PERTUZUMAB
     Route: 042
     Dates: start: 20190525
  2. HERCEPTIN [Suspect]
     Active Substance: TRASTUZUMAB
     Dosage: 600 MG/5 ML SOL INJ FR 5 ML SC 1 FRASC
     Route: 058
     Dates: start: 20190726
  3. HERCEPTIN [Suspect]
     Active Substance: TRASTUZUMAB
     Dosage: 600 MG/5 ML SOL INJ FR 5 ML SC 1 FRASC
     Route: 058
     Dates: start: 20200110
  4. HERCEPTIN [Suspect]
     Active Substance: TRASTUZUMAB
     Route: 058
     Dates: start: 20190525
  5. PERJETA [Suspect]
     Active Substance: PERTUZUMAB
     Dosage: 420 MG/14 ML SOL INJ FR 14 ML IV 2 AMPOL
     Route: 042
     Dates: start: 20200518
  6. PERJETA [Suspect]
     Active Substance: PERTUZUMAB
     Dosage: 420 MG/14 ML SOL INJ FR 14 ML IV 2 AMPOL
     Route: 042
     Dates: start: 20191120
  7. PERJETA [Suspect]
     Active Substance: PERTUZUMAB
     Dosage: 420 MG/14 ML SOL INJ FR 14 ML IV 2 AMPOL
     Route: 042
     Dates: start: 20200110
  8. PERJETA [Suspect]
     Active Substance: PERTUZUMAB
     Dosage: 420 MG/14 ML SOL INJ FR 14 ML IV 2 AMPOL
     Route: 042
     Dates: start: 20200310
  9. HERCEPTIN [Suspect]
     Active Substance: TRASTUZUMAB
     Dosage: 600 MG/5 ML SOL INJ FR 5 ML SC 1 FRASC
     Route: 058
     Dates: start: 20190703
  10. PERJETA [Suspect]
     Active Substance: PERTUZUMAB
     Dosage: 420 MG/14 ML SOL INJ FR 14 ML IV 2 AMPOL
     Route: 042
     Dates: start: 20200131
  11. PERJETA [Suspect]
     Active Substance: PERTUZUMAB
     Dosage: 420 MG/14 ML SOL INJ FR 14 ML IV 2 AMPOL
     Route: 042
     Dates: start: 20200331
  12. HERCEPTIN [Suspect]
     Active Substance: TRASTUZUMAB
     Indication: BREAST CANCER METASTATIC
     Dosage: 600 MG/5 ML SOL INJ FR 5 ML SC 1 FRASC
     Route: 058
     Dates: start: 20190606, end: 20200519
  13. PERJETA [Suspect]
     Active Substance: PERTUZUMAB
     Indication: BREAST CANCER METASTATIC
     Route: 042
     Dates: start: 20190606, end: 20200603
  14. PERJETA [Suspect]
     Active Substance: PERTUZUMAB
     Dosage: 420 MG/14 ML SOL INJ FR 14 ML IV 2 AMPOL
     Route: 042
     Dates: start: 20190606, end: 20190606
  15. PERJETA [Suspect]
     Active Substance: PERTUZUMAB
     Dosage: 420 MG/14 ML SOL INJ FR 14 ML IV 2 AMPOL
     Route: 042
     Dates: start: 20200331
  16. HERCEPTIN [Suspect]
     Active Substance: TRASTUZUMAB
     Dosage: 600 MG/5 ML SOL INJ FR 5 ML SC 1 FRASC
     Route: 058
     Dates: start: 20200424
  17. HERCEPTIN [Suspect]
     Active Substance: TRASTUZUMAB
     Dosage: 600 MG/5 ML SOL INJ FR 5 ML SC 1 FRASC
     Route: 058
     Dates: start: 20190816
  18. HERCEPTIN [Suspect]
     Active Substance: TRASTUZUMAB
     Dosage: 600 MG/5 ML SOL INJ FR 5 ML SC 1 FRASC
     Route: 058
     Dates: start: 20191120
  19. HERCEPTIN [Suspect]
     Active Substance: TRASTUZUMAB
     Dosage: 600 MG/5 ML SOL INJ FR 5 ML SC 1 FRASC
     Route: 058
     Dates: start: 20200131
  20. HERCEPTIN [Suspect]
     Active Substance: TRASTUZUMAB
     Dosage: 600 MG/5 ML SOL INJ FR 5 ML SC 1 FRASC
     Route: 058
     Dates: start: 20200310
  21. DOCETAXEL. [Suspect]
     Active Substance: DOCETAXEL
     Indication: BREAST CANCER METASTATIC
     Route: 065
     Dates: start: 20190525
  22. PERJETA [Suspect]
     Active Substance: PERTUZUMAB
     Dosage: 420 MG/14 ML SOL INJ FR 14 ML IV 2 AMPOL
     Route: 042
     Dates: start: 20190703, end: 20201009
  23. HERCEPTIN [Suspect]
     Active Substance: TRASTUZUMAB
     Dosage: 600 MG/5 ML SOL INJ FR 5 ML SC 1 FRASC
     Route: 058
     Dates: start: 20201017
  24. HERCEPTIN [Suspect]
     Active Substance: TRASTUZUMAB
     Dosage: 600 MG/5 ML SOL INJ FR 5 ML SC 1 FRASC
     Route: 058
     Dates: start: 20191108
  25. HERCEPTIN [Suspect]
     Active Substance: TRASTUZUMAB
     Dosage: 600 MG/5 ML SOL INJ FR 5 ML SC 1 FRASC
     Route: 058
     Dates: start: 20200331
  26. HERCEPTIN [Suspect]
     Active Substance: TRASTUZUMAB
     Dosage: 600 MG/5 ML SOL INJ FR 5 ML SC 1 FRASC
     Route: 058
     Dates: start: 20191129
  27. HERCEPTIN [Suspect]
     Active Substance: TRASTUZUMAB
     Dosage: 600 MG/5 ML SOL INJ FR 5 ML SC 1 FRASC
     Route: 058
     Dates: start: 20200518

REACTIONS (10)
  - Chest pain [Recovering/Resolving]
  - Fatigue [Recovering/Resolving]
  - Synovial cyst [Recovering/Resolving]
  - Mass [Unknown]
  - Lung neoplasm [Recovering/Resolving]
  - Drug ineffective [Unknown]
  - Neoplasm [Recovering/Resolving]
  - Sepsis [Unknown]
  - Febrile neutropenia [Unknown]
  - Disease progression [Recovering/Resolving]

NARRATIVE: CASE EVENT DATE: 201907
